FAERS Safety Report 4634186-0 (Version None)
Quarter: 2005Q2

REPORT INFORMATION
  Report Type: 
  Country: None (occurrence: None)
  Receive Date: 20050325
  Receipt Date: 20041230
  Transmission Date: 20051028
  Serious: No
  Sender: FDA-Public Use
  Company Number: USA050187209

PATIENT
  Age: 64 Year
  Sex: Female

DRUGS (6)
  1. FORTEO [Suspect]
     Indication: OSTEOPOROSIS
     Dates: start: 20040701
  2. PREDNISONE [Concomitant]
  3. CELEBREX [Concomitant]
  4. LORTAB [Concomitant]
  5. VERAPAMIL [Concomitant]
  6. VITAMIN C [Concomitant]

REACTIONS (2)
  - FATIGUE [None]
  - NAUSEA [None]
